FAERS Safety Report 10674604 (Version 1)
Quarter: 2014Q4

REPORT INFORMATION
  Report Type: Spontaneous
  Country: US (occurrence: US)
  Receive Date: 20141224
  Receipt Date: 20141224
  Transmission Date: 20150529
  Serious: Yes (Hospitalization, Other)
  Sender: FDA-Public Use
  Company Number: US-ACTAVIS-2014-27155

PATIENT
  Age: 44 Year
  Sex: Female

DRUGS (2)
  1. ALPRAZOLAM (AELLC) [Suspect]
     Active Substance: ALPRAZOLAM
     Indication: OVERDOSE
     Dosage: 60 MG, TOTAL
     Route: 048
  2. K-DUR [Suspect]
     Active Substance: POTASSIUM CHLORIDE
     Indication: OVERDOSE
     Dosage: 600 MEQ, TOTAL
     Route: 048

REACTIONS (3)
  - Intentional overdose [Recovered/Resolved]
  - Mental disorder [Unknown]
  - Bezoar [Recovered/Resolved]
